FAERS Safety Report 13399659 (Version 2)
Quarter: 2018Q1

REPORT INFORMATION
  Report Type: Other
  Country: GB (occurrence: GB)
  Receive Date: 20170404
  Receipt Date: 20180329
  Transmission Date: 20180508
  Serious: Yes (Other)
  Sender: FDA-Public Use
  Company Number: GB-LUPIN PHARMACEUTICALS INC.-E2B_00007057

PATIENT
  Age: 23 Year
  Sex: Male
  Weight: 65 kg

DRUGS (1)
  1. SERTRALINE [Suspect]
     Active Substance: SERTRALINE HYDROCHLORIDE
     Indication: ANXIETY DISORDER
     Dosage: 50 MG, UNK
     Route: 048
     Dates: start: 20151121, end: 20160614

REACTIONS (4)
  - Premature ejaculation [Not Recovered/Not Resolved]
  - Libido decreased [Not Recovered/Not Resolved]
  - Withdrawal syndrome [Unknown]
  - Erectile dysfunction [Not Recovered/Not Resolved]

NARRATIVE: CASE EVENT DATE: 20160615
